FAERS Safety Report 6979452-9 (Version None)
Quarter: 2010Q3

REPORT INFORMATION
  Report Type: 
  Country: None (occurrence: None)
  Receive Date: 20100913
  Receipt Date: 20100902
  Transmission Date: 20110219
  Serious: Yes (Life-Threatening)
  Sender: FDA-Public Use
  Company Number: JP-AMGEN-US392473

PATIENT
  Sex: Female

DRUGS (11)
  1. ENBREL [Suspect]
     Indication: RHEUMATOID ARTHRITIS
     Route: 058
     Dates: start: 20081222, end: 20090109
  2. ENBREL [Suspect]
     Route: 058
     Dates: start: 20090113, end: 20100118
  3. RHEUMATREX [Suspect]
     Indication: RHEUMATOID ARTHRITIS
     Route: 048
     Dates: start: 20081202, end: 20090714
  4. RHEUMATREX [Suspect]
     Route: 048
     Dates: start: 20090722, end: 20100126
  5. PERSANTINE [Concomitant]
     Dosage: NOT SPECIFIED
     Route: 048
  6. OLMETEC [Concomitant]
     Dosage: NOT SPECIFIED
     Route: 048
  7. THYRADIN S [Concomitant]
     Dosage: NOT SPECIFIED
     Route: 048
  8. LAC B [Concomitant]
     Dosage: UNSPECIFIED
     Route: 048
  9. LORATADINE [Concomitant]
     Dosage: NOT SPECIFIED
     Route: 048
     Dates: end: 20100215
  10. GLUFAST [Concomitant]
     Dosage: NOT SPECIFIED
     Route: 048
     Dates: end: 20100212
  11. PARIET [Concomitant]
     Dosage: NOT SPECIFIED
     Route: 048
     Dates: end: 20100215

REACTIONS (1)
  - COLON CANCER METASTATIC [None]
